FAERS Safety Report 16630762 (Version 1)
Quarter: 2019Q3

REPORT INFORMATION
  Report Type: Report from Study
  Country: AE (occurrence: AE)
  Receive Date: 20190725
  Receipt Date: 20190725
  Transmission Date: 20191004
  Serious: Yes (Hospitalization, Other)
  Sender: FDA-Public Use
  Company Number: PHHY2018AE047374

PATIENT
  Age: 40 Year
  Sex: Female

DRUGS (1)
  1. COSENTYX [Suspect]
     Active Substance: SECUKINUMAB
     Indication: PATERNAL EXPOSURE DURING PREGNANCY
     Dosage: FETAL DRUG EXPOSURE VIA PARTNER
     Route: 050

REACTIONS (3)
  - Internal haemorrhage [Unknown]
  - Normal newborn [Unknown]
  - Exposure via partner [Recovered/Resolved]

NARRATIVE: CASE EVENT DATE: 201711
